FAERS Safety Report 20827510 (Version 1)
Quarter: 2022Q2

REPORT INFORMATION
  Report Type: Spontaneous
  Country: US (occurrence: US)
  Receive Date: 20220513
  Receipt Date: 20220513
  Transmission Date: 20220720
  Serious: No
  Sender: FDA-Public Use
  Company Number: US-PFIZER INC-202200524751

PATIENT
  Age: 65 Year
  Sex: Female
  Weight: 100.2 kg

DRUGS (3)
  1. IBRANCE [Suspect]
     Active Substance: PALBOCICLIB
     Indication: Breast cancer metastatic
     Dosage: 100 MG, CYCLIC (ONCE A DAY FOR 21 DAYS THAN A WEEK VACATION)
     Dates: start: 20210621
  2. IBRANCE [Suspect]
     Active Substance: PALBOCICLIB
     Dosage: 100 MG, CYCLIC (ONCE A DAY FOR 21 DAYS THAN A WEEK VACATION)
     Dates: start: 20220407
  3. FASLODEX [Suspect]
     Active Substance: FULVESTRANT
     Dosage: UNK
     Dates: start: 20210421

REACTIONS (1)
  - Dyspnoea [Not Recovered/Not Resolved]
